FAERS Safety Report 21903802 (Version 6)
Quarter: 2023Q4

REPORT INFORMATION
  Report Type: Spontaneous
  Country: HR (occurrence: HR)
  Receive Date: 20230124
  Receipt Date: 20231120
  Transmission Date: 20240110
  Serious: Yes (Other)
  Sender: FDA-Public Use
  Company Number: HR-BRISTOL-MYERS SQUIBB COMPANY-2022-151110

PATIENT
  Age: 73 Year
  Sex: Male
  Weight: 105 kg

DRUGS (31)
  1. CLOPIDOGREL [Suspect]
     Active Substance: CLOPIDOGREL BISULFATE
     Indication: Product used for unknown indication
     Dosage: 100 MILLIGRAM
     Route: 065
     Dates: start: 2016
  2. CLOPIDOGREL [Suspect]
     Active Substance: CLOPIDOGREL BISULFATE
     Dosage: 75 MILLIGRAM, 75 MG
     Route: 065
     Dates: end: 2016
  3. CLOPIDOGREL [Suspect]
     Active Substance: CLOPIDOGREL BISULFATE
     Dosage: 200 MILLIGRAM
     Route: 065
  4. PANTOPRAZOLE [Suspect]
     Active Substance: PANTOPRAZOLE
     Indication: Product used for unknown indication
     Dosage: 40 MILLIGRAM,40 MG
     Route: 065
  5. ROSUVASTATIN [Suspect]
     Active Substance: ROSUVASTATIN
     Indication: Product used for unknown indication
     Dosage: 20 MILLIGRAM
     Route: 065
  6. ROSUVASTATIN [Suspect]
     Active Substance: ROSUVASTATIN
     Dosage: 10 MILLIGRAM
     Route: 065
  7. APIXABAN [Suspect]
     Active Substance: APIXABAN
     Indication: Cerebrovascular accident prophylaxis
     Dosage: 5 MILLIGRAM, BID
     Route: 065
  8. APIXABAN [Suspect]
     Active Substance: APIXABAN
     Dosage: 10 MILLIGRAM, QD, 5 MG, 2X/DAY
     Route: 048
  9. APIXABAN [Suspect]
     Active Substance: APIXABAN
     Dosage: 10 MILLIGRAM, 10 MG, 1X/DAY
     Route: 048
  10. MESALAMINE [Suspect]
     Active Substance: MESALAMINE
     Indication: Product used for unknown indication
     Dosage: 100 MILLIGRAM, 100 MG
     Route: 065
     Dates: end: 2016
  11. MESALAMINE [Suspect]
     Active Substance: MESALAMINE
     Dosage: 100 MILLIGRAM, 100 MG
     Route: 065
     Dates: start: 2016
  12. ASPIRIN [Suspect]
     Active Substance: ASPIRIN
     Indication: Product used for unknown indication
     Dosage: 100 MILLIGRAM, 100 MG
     Route: 065
     Dates: end: 2016
  13. ASPIRIN [Suspect]
     Active Substance: ASPIRIN
     Dosage: 100 MILLIGRAM, 100 MG
     Route: 065
     Dates: start: 2016, end: 2016
  14. DABIGATRAN [Suspect]
     Active Substance: DABIGATRAN
     Indication: Product used for unknown indication
     Dosage: 110 MILLIGRAM, BID
     Route: 065
  15. DABIGATRAN [Suspect]
     Active Substance: DABIGATRAN
     Dosage: 220 MG, QD, 110 MG, 2X/DAY
     Route: 065
  16. DABIGATRAN [Suspect]
     Active Substance: DABIGATRAN
     Dosage: 110 MILLIGRAM, QD
     Route: 065
  17. AMIODARONE [Suspect]
     Active Substance: AMIODARONE
     Indication: Product used for unknown indication
     Dosage: 200 MILLIGRAM, 200 MG
     Route: 065
  18. AMIODARONE [Suspect]
     Active Substance: AMIODARONE
     Dosage: 100 MILLIGRAM, 100 MG
     Route: 065
  19. DALTEPARIN [Suspect]
     Active Substance: DALTEPARIN
     Indication: Product used for unknown indication
     Dosage: 5000 INTERNATIONAL UNIT, BID
     Route: 065
  20. DALTEPARIN [Suspect]
     Active Substance: DALTEPARIN
     Dosage: 10000 IU, QD, 5000 IU, 2X/DAY, 0.5 - DAILY
     Route: 065
  21. DALTEPARIN [Suspect]
     Active Substance: DALTEPARIN
     Dosage: UNK, QD, 0.5 - DAILY, 2X/DAY
     Route: 065
  22. DALTEPARIN [Suspect]
     Active Substance: DALTEPARIN
     Dosage: UNK, BID
     Route: 065
  23. METOPROLOL [Suspect]
     Active Substance: METOPROLOL
     Indication: Product used for unknown indication
     Dosage: 50 MILLIGRAM,METOPROLOL SALT NOT SPECIFIED
     Route: 065
  24. METOPROLOL [Suspect]
     Active Substance: METOPROLOL
     Dosage: 25 MILLIGRAM,25 MG
     Route: 065
  25. RAMIPRIL [Suspect]
     Active Substance: RAMIPRIL
     Indication: Product used for unknown indication
     Dosage: 2.5 MILLIGRAM, 2.5 MG
     Route: 065
  26. RAMIPRIL [Suspect]
     Active Substance: RAMIPRIL
     Dosage: 3 MILLIGRAM, UNKNOWN (OTHER/UNSPECIFIED)
     Route: 065
  27. RAMIPRIL [Suspect]
     Active Substance: RAMIPRIL
     Dosage: 5 MILLIGRAM, 5 MG
     Route: 065
  28. RAMIPRIL [Suspect]
     Active Substance: RAMIPRIL
     Dosage: 3 MILLIGRAM
     Route: 065
  29. RAMIPRIL [Suspect]
     Active Substance: RAMIPRIL
     Dosage: 5 MILLIGRAM, 5 MG
     Route: 065
  30. WARFARIN [Suspect]
     Active Substance: WARFARIN
     Indication: Product used for unknown indication
     Dosage: 20 MILLIGRAM
     Route: 065
  31. WARFARIN [Suspect]
     Active Substance: WARFARIN
     Dosage: UNK
     Route: 065

REACTIONS (4)
  - Atrial fibrillation [Unknown]
  - Anastomotic infection [Unknown]
  - Adenocarcinoma of colon [Unknown]
  - Increased tendency to bruise [Unknown]

NARRATIVE: CASE EVENT DATE: 20160101
